FAERS Safety Report 12198803 (Version 2)
Quarter: 2016Q2

REPORT INFORMATION
  Report Type: Spontaneous
  Country: US (occurrence: US)
  Receive Date: 20160322
  Receipt Date: 20160411
  Transmission Date: 20160815
  Serious: Yes (Other)
  Sender: FDA-Public Use
  Company Number: US-AMGEN-USASP2016033290

PATIENT
  Age: 76 Year
  Sex: Female

DRUGS (2)
  1. ENBREL [Suspect]
     Active Substance: ETANERCEPT
     Indication: OSTEOPOROSIS
  2. ENBREL [Suspect]
     Active Substance: ETANERCEPT
     Indication: RHEUMATOID ARTHRITIS
     Dosage: UNK UNK, QWK
     Route: 065
     Dates: start: 201602

REACTIONS (13)
  - Hand deformity [Unknown]
  - Ill-defined disorder [Unknown]
  - Injection site discolouration [Unknown]
  - Rash erythematous [Recovering/Resolving]
  - Finger deformity [Unknown]
  - Injection site haemorrhage [Unknown]
  - Systemic lupus erythematosus [Unknown]
  - Malaise [Unknown]
  - Rash pruritic [Unknown]
  - Skin discolouration [Unknown]
  - Mass [Unknown]
  - Skin disorder [Unknown]
  - Mobility decreased [Unknown]

NARRATIVE: CASE EVENT DATE: 2016
